FAERS Safety Report 8375500-2 (Version None)
Quarter: 2012Q1

REPORT INFORMATION
  Report Type: 
  Country: None (occurrence: None)
  Receive Date: 20120323
  Receipt Date: 20110215
  Transmission Date: 20120608
  Serious: Yes (Other)
  Sender: FDA-Public Use
  Company Number: 163-21880-11022052

PATIENT
  Sex: Male

DRUGS (1)
  1. REVLIMID [Suspect]
     Indication: MULTIPLE MYELOMA
     Dosage: PO
     Route: 048

REACTIONS (4)
  - FULL BLOOD COUNT DECREASED [None]
  - DIPLOPIA [None]
  - HERPES ZOSTER [None]
  - CEREBROVASCULAR ACCIDENT [None]
